FAERS Safety Report 6215340-3 (Version None)
Quarter: 2009Q2

REPORT INFORMATION
  Report Type: 
  Country: None (occurrence: None)
  Receive Date: 20090604
  Receipt Date: 20090511
  Transmission Date: 20091009
  Serious: No
  Sender: FDA-Public Use
  Company Number: US-BAYER-200911444BCC

PATIENT
  Age: 14 Year
  Sex: Female
  Weight: 61 kg

DRUGS (2)
  1. ALEVE [Suspect]
     Indication: MYALGIA
     Dosage: AS USED: 880 MG  UNIT DOSE: 220 MG
     Route: 048
     Dates: start: 20090506
  2. ADVIL [Concomitant]
     Indication: MYALGIA
     Route: 065

REACTIONS (1)
  - MYDRIASIS [None]
